FAERS Safety Report 17688623 (Version 1)
Quarter: 2020Q2

REPORT INFORMATION
  Report Type: Spontaneous
  Country: US (occurrence: US)
  Receive Date: 20200421
  Receipt Date: 20200421
  Transmission Date: 20200714
  Serious: Yes (Other)
  Sender: FDA-Public Use
  Company Number: US-HIKMA PHARMACEUTICALS USA INC.-US-H14001-20-51114

PATIENT
  Age: 29 Year
  Sex: Female

DRUGS (1)
  1. TESTOSTERONE. [Suspect]
     Active Substance: TESTOSTERONE
     Indication: TRANSGENDER HORMONAL THERAPY
     Route: 065

REACTIONS (2)
  - Myocardial ischaemia [Recovered/Resolved]
  - Atherosclerotic plaque rupture [Recovered/Resolved]
